FAERS Safety Report 9049830 (Version 1)
Quarter: 2013Q1

REPORT INFORMATION
  Report Type: Report from Study
  Country: DE (occurrence: DE)
  Receive Date: 20130206
  Receipt Date: 20130206
  Transmission Date: 20140127
  Serious: Yes (Death, Hospitalization)
  Sender: FDA-Public Use
  Company Number: DE-009507513-1209DEU011346

PATIENT
  Age: 62 Year
  Sex: Female
  Weight: 63.5 kg

DRUGS (3)
  1. VICTRELIS [Suspect]
     Indication: HEPATITIS C
     Dosage: 800 MG, TID
     Route: 048
     Dates: start: 20120906
  2. COPEGUS [Suspect]
     Indication: HEPATITIS C
     Dosage: 400 MG, UNK
     Dates: start: 20120809
  3. PEGASYS [Suspect]
     Indication: HEPATITIS C
     Dosage: 180 MICROGRAM, UNK
     Dates: start: 20120809

REACTIONS (7)
  - Dyspnoea exertional [Fatal]
  - Anaemia [Fatal]
  - Gastrointestinal infection [Recovered/Resolved]
  - Nausea [Recovered/Resolved]
  - Vomiting [Recovered/Resolved]
  - Chills [Recovered/Resolved]
  - Dehydration [Recovered/Resolved]
